FAERS Safety Report 5206414-4 (Version None)
Quarter: 2007Q1

REPORT INFORMATION
  Report Type: 
  Country: None (occurrence: None)
  Receive Date: 20070111
  Receipt Date: 20061211
  Transmission Date: 20070707
  Serious: Yes (Death, Hospitalization, Other)
  Sender: FDA-Public Use
  Company Number: US-PFIZER INC-2006116127

PATIENT
  Sex: Female
  Weight: 39.5 kg

DRUGS (3)
  1. BEXTRA [Suspect]
     Indication: PAIN
     Route: 048
     Dates: start: 20020801, end: 20050401
  2. BEXTRA [Suspect]
     Indication: INFLAMMATION
  3. BEXTRA [Suspect]
     Indication: ARTHRITIS

REACTIONS (2)
  - CEREBROVASCULAR ACCIDENT [None]
  - MYOCARDIAL INFARCTION [None]
